FAERS Safety Report 7723430-9 (Version None)
Quarter: 2011Q3

REPORT INFORMATION
  Report Type: 
  Country: None (occurrence: None)
  Receive Date: 20110901
  Receipt Date: 20110830
  Transmission Date: 20111222
  Serious: Yes (Other)
  Sender: FDA-Public Use
  Company Number: US-PFIZER INC-2010082541

PATIENT

DRUGS (9)
  1. WARFARIN [Concomitant]
  2. PEPCID [Concomitant]
  3. PREVACID [Concomitant]
  4. PROTONIX [Suspect]
     Dosage: UNK
     Route: 042
     Dates: start: 20100601
  5. ACIPHEX [Concomitant]
  6. PROTONIX [Suspect]
     Dosage: UNK
     Route: 048
     Dates: start: 20100401
  7. ZEGERID [Concomitant]
  8. CARAFATE [Concomitant]
  9. ZANTAC [Concomitant]

REACTIONS (5)
  - OESOPHAGEAL ULCER [None]
  - DYSPHAGIA [None]
  - GENERALISED OEDEMA [None]
  - PRURITUS [None]
  - BURNING SENSATION [None]
